FAERS Safety Report 17056546 (Version 1)
Quarter: 2019Q4

REPORT INFORMATION
  Report Type: Report from Study
  Country: DE (occurrence: DE)
  Receive Date: 20191121
  Receipt Date: 20191121
  Transmission Date: 20200122
  Serious: Yes (Other)
  Sender: FDA-Public Use
  Company Number: DE-BIOGEN-2019BI00714463

PATIENT
  Sex: Female
  Weight: 71 kg

DRUGS (3)
  1. FEMIBION [Concomitant]
     Indication: PROPHYLAXIS
     Route: 065
     Dates: start: 201810
  2. PLEGRIDY [Suspect]
     Active Substance: PEGINTERFERON BETA-1A
     Indication: MULTIPLE SCLEROSIS
     Route: 058
     Dates: start: 20160701, end: 20181001
  3. VITAMIN D [Concomitant]
     Active Substance: VITAMIN D NOS
     Indication: PROPHYLAXIS
     Route: 065
     Dates: start: 2015

REACTIONS (2)
  - Placenta praevia [Recovered/Resolved]
  - Maternal exposure during pregnancy [Recovered/Resolved]
